FAERS Safety Report 4976666-4 (Version None)
Quarter: 2006Q2

REPORT INFORMATION
  Report Type: 
  Country: None (occurrence: None)
  Receive Date: 20060412
  Receipt Date: 20060405
  Transmission Date: 20061013
  Serious: Yes (Hospitalization)
  Sender: FDA-Public Use
  Company Number: S06-USA-00114-01

PATIENT
  Age: 88 Year
  Sex: Female

DRUGS (12)
  1. LEXAPRO [Suspect]
     Indication: DEPRESSION
     Dosage: 20 MG QD PO
     Route: 048
     Dates: start: 20050901, end: 20050901
  2. LEXAPRO [Suspect]
     Indication: DEPRESSION
     Dosage: 10 MG QD PO
     Route: 048
     Dates: start: 20050901, end: 20051226
  3. LEXAPRO [Suspect]
     Indication: DEPRESSION
     Dosage: 5 MG QD PO
     Route: 048
     Dates: start: 20051227, end: 20051231
  4. LEXAPRO [Suspect]
     Indication: DEPRESSION
     Dosage: 10 MG QD PO
     Route: 048
     Dates: start: 20050901, end: 20050901
  5. AMBIEN CR [Suspect]
     Indication: INSOMNIA
     Dosage: 25 MG ONCE PO
     Route: 048
     Dates: start: 20051225, end: 20051225
  6. AMBIEN CR [Suspect]
     Indication: INSOMNIA
     Dosage: 12.5 MG QHS PO
     Route: 048
     Dates: start: 20051226, end: 20060101
  7. AMBIEN CR [Suspect]
     Indication: INSOMNIA
     Dosage: 12.5 MG QHS PO
     Route: 048
     Dates: start: 20051203, end: 20051223
  8. AMBIEN CR [Suspect]
     Indication: INSOMNIA
     Dosage: 18.75 MG ONCE PO
     Route: 048
     Dates: start: 20051224, end: 20051224
  9. RISPERDAL [Concomitant]
  10. LUNESTA (ESZOPICIONE) [Concomitant]
  11. AVAPRO [Concomitant]
  12. SOTALOL HCL [Concomitant]

REACTIONS (13)
  - ACCIDENT [None]
  - CONDITION AGGRAVATED [None]
  - FALL [None]
  - HANGOVER [None]
  - HEAD INJURY [None]
  - HUMERUS FRACTURE [None]
  - INJURY [None]
  - INSOMNIA [None]
  - NIGHTMARE [None]
  - PAIN [None]
  - SLEEP WALKING [None]
  - SOMNOLENCE [None]
  - SYNCOPE VASOVAGAL [None]
